FAERS Safety Report 16527221 (Version 6)
Quarter: 2019Q4

REPORT INFORMATION
  Report Type: Report from Study
  Country: US (occurrence: US)
  Receive Date: 20190703
  Receipt Date: 20191023
  Transmission Date: 20200122
  Serious: Yes (Other)
  Sender: FDA-Public Use
  Company Number: PHEH2019US027294

PATIENT
  Sex: Female

DRUGS (3)
  1. TASIGNA [Suspect]
     Active Substance: NILOTINIB
     Dosage: 100 UNK
     Route: 048
  2. TASIGNA [Suspect]
     Active Substance: NILOTINIB
     Dosage: 50 MG
     Route: 048
     Dates: end: 201907
  3. TASIGNA [Suspect]
     Active Substance: NILOTINIB
     Indication: NEPHROGENIC SYSTEMIC FIBROSIS
     Dosage: 200 MG
     Route: 048
     Dates: start: 201906

REACTIONS (13)
  - Pulmonary oedema [Unknown]
  - Fluid retention [Recovering/Resolving]
  - Generalised oedema [Unknown]
  - Oedema [Unknown]
  - Nephrogenic systemic fibrosis [Unknown]
  - Oedema peripheral [Unknown]
  - Ill-defined disorder [Unknown]
  - Electrocardiogram abnormal [Unknown]
  - Cardiac disorder [Unknown]
  - Dyspnoea [Unknown]
  - Drug intolerance [Unknown]
  - Electrocardiogram QT prolonged [Recovering/Resolving]
  - Drug ineffective for unapproved indication [Unknown]
